FAERS Safety Report 22370192 (Version 1)
Quarter: 2023Q2

REPORT INFORMATION
  Report Type: Other
  Country: CA (occurrence: CA)
  Receive Date: 20230526
  Receipt Date: 20230526
  Transmission Date: 20230721
  Serious: Yes (Other)
  Sender: FDA-Public Use
  Company Number: CA-CELLTRION INC.-2023CA010781

PATIENT

DRUGS (82)
  1. ADALIMUMAB [Suspect]
     Active Substance: ADALIMUMAB
     Indication: Crohn^s disease
     Route: 058
  2. ACEBUTOLOL [Suspect]
     Active Substance: ACEBUTOLOL
     Indication: Product used for unknown indication
     Dosage: 100 MILLIGRAM, 1 EVERY 12 HOURS
     Route: 065
  3. ACEBUTOLOL HYDROCHLORIDE [Suspect]
     Active Substance: ACEBUTOLOL HYDROCHLORIDE
     Indication: Product used for unknown indication
     Dosage: 100 MILLIGRAM, 1 EVERY 12 HOURS
     Route: 065
  4. ACEBUTOLOL HYDROCHLORIDE [Suspect]
     Active Substance: ACEBUTOLOL HYDROCHLORIDE
     Dosage: 100 MILLIGRAM
     Route: 065
  5. ACEBUTOLOL HYDROCHLORIDE [Suspect]
     Active Substance: ACEBUTOLOL HYDROCHLORIDE
     Indication: Product used for unknown indication
     Dosage: 100 MILLIGRAM, 1 EVERY 12 HOURS
     Route: 065
  6. AMLODIPINE [Suspect]
     Active Substance: AMLODIPINE BESYLATE
     Indication: Product used for unknown indication
     Dosage: 5 MILLIGRAM, 1 EVERY 1 DAYS
     Route: 065
  7. AMLODIPINE BESYLATE [Suspect]
     Active Substance: AMLODIPINE BESYLATE
     Indication: Product used for unknown indication
     Dosage: 5 MILLIGRAM, 1 EVERY 1 DAYS
     Route: 065
  8. AMLODIPINE BESYLATE [Suspect]
     Active Substance: AMLODIPINE BESYLATE
     Dosage: 5 MILLIGRAM
     Route: 065
  9. AMLODIPINE BESYLATE [Suspect]
     Active Substance: AMLODIPINE BESYLATE
     Indication: Product used for unknown indication
     Dosage: 5 MILLIGRAM, 1 EVERY 12 HOURS
     Route: 065
  10. ALLANTOIN\AMINACRINE HYDROCHLORIDE\DIENESTROL\SULFANILAMIDE [Suspect]
     Active Substance: ALLANTOIN\AMINACRINE HYDROCHLORIDE\DIENESTROL\SULFANILAMIDE
     Indication: Product used for unknown indication
     Dosage: 2 MILLIGRAM, 1 EVERY 1 DAYS
     Route: 065
  11. ALLANTOIN\AMINACRINE HYDROCHLORIDE\DIENESTROL\SULFANILAMIDE [Suspect]
     Active Substance: ALLANTOIN\AMINACRINE HYDROCHLORIDE\DIENESTROL\SULFANILAMIDE
     Indication: Product used for unknown indication
     Dosage: 2 MILLIGRAM
     Route: 065
  12. ALLANTOIN\AMINACRINE HYDROCHLORIDE\DIENESTROL\SULFANILAMIDE [Suspect]
     Active Substance: ALLANTOIN\AMINACRINE HYDROCHLORIDE\DIENESTROL\SULFANILAMIDE
     Dosage: 2 MILLIGRAM, 1 EVERY 12 HOURS
     Route: 065
  13. ALLANTOIN\AMINACRINE HYDROCHLORIDE\DIENESTROL\SULFANILAMIDE [Suspect]
     Active Substance: ALLANTOIN\AMINACRINE HYDROCHLORIDE\DIENESTROL\SULFANILAMIDE
     Dosage: UNK
     Route: 065
  14. ALLANTOIN\AMINACRINE HYDROCHLORIDE\DIENESTROL\SULFANILAMIDE [Suspect]
     Active Substance: ALLANTOIN\AMINACRINE HYDROCHLORIDE\DIENESTROL\SULFANILAMIDE
     Indication: Product used for unknown indication
     Route: 065
  15. BOTULINUM TOXIN TYPE A [Suspect]
     Active Substance: BOTULINUM TOXIN TYPE A
     Indication: Migraine
     Dosage: UNK
     Route: 058
  16. BOTULINUM TOXIN TYPE A [Suspect]
     Active Substance: BOTULINUM TOXIN TYPE A
     Dosage: 1 EVERY 1 DAYS
     Route: 058
  17. BOTULINUM TOXIN TYPE A [Suspect]
     Active Substance: BOTULINUM TOXIN TYPE A
     Dosage: UNK
     Route: 058
  18. BOTULINUM TOXIN TYPE A [Suspect]
     Active Substance: BOTULINUM TOXIN TYPE A
     Indication: Migraine
     Dosage: 1 EVERY 3 MONTHS
     Route: 058
  19. BUDESONIDE [Suspect]
     Active Substance: BUDESONIDE
     Indication: Product used for unknown indication
     Dosage: 9 MILLIGRAM, 1 EVERY 1 DAYS
     Route: 048
  20. BUDESONIDE [Suspect]
     Active Substance: BUDESONIDE
     Indication: Product used for unknown indication
     Dosage: 9 MILLIGRAM, 1 EVERY 1 DAYS
     Route: 048
  21. BUDESONIDE [Suspect]
     Active Substance: BUDESONIDE
     Dosage: UNK
  22. BUDESONIDE [Suspect]
     Active Substance: BUDESONIDE
     Indication: Product used for unknown indication
     Dosage: 9 MILLIGRAM, 1 EVERY 1 DAYS
     Route: 048
  23. BUPROPION [Suspect]
     Active Substance: BUPROPION
     Indication: Product used for unknown indication
     Dosage: 200 MILLIGRAM, 1 EVERY 1 DAYS
     Route: 065
  24. BUPROPION [Suspect]
     Active Substance: BUPROPION
     Indication: Product used for unknown indication
     Dosage: 200 MILLIGRAM, 1 EVERY 2 DAYS
     Route: 065
  25. BUPROPION [Suspect]
     Active Substance: BUPROPION
     Dosage: 200 MILLIGRAM, 1 EVERY 1 DAYS
     Route: 065
  26. DEXILANT [Suspect]
     Active Substance: DEXLANSOPRAZOLE
     Indication: Product used for unknown indication
     Dosage: UNK
     Route: 065
  27. DEXILANT [Suspect]
     Active Substance: DEXLANSOPRAZOLE
     Dosage: 60 MILLIGRAM, 1 EVERY 2 DAYS
     Route: 065
  28. DEXILANT [Suspect]
     Active Substance: DEXLANSOPRAZOLE
     Indication: Product used for unknown indication
     Dosage: 60 MILLIGRAM, 1 EVERY 1 DAYS
     Route: 065
  29. DEXILANT [Suspect]
     Active Substance: DEXLANSOPRAZOLE
     Indication: Product used for unknown indication
     Dosage: 60 MILLIGRAM, 1 EVERY 1 DAYS
     Route: 065
  30. DEXLANSOPRAZOLE [Suspect]
     Active Substance: DEXLANSOPRAZOLE
     Indication: Product used for unknown indication
     Dosage: 60 MILLIGRAM, 1 EVERY 1 DAYS
     Route: 065
  31. DIENESTROL [Suspect]
     Active Substance: DIENESTROL
     Indication: Product used for unknown indication
     Dosage: 2 MILLIGRAM, 1 EVERY 1 DAYS
     Route: 065
  32. ENTOCORT [Suspect]
     Active Substance: BUDESONIDE
     Indication: Product used for unknown indication
     Dosage: 9 MILLIGRAM, 1 EVERY 1 DAYS
     Route: 048
  33. ERGOCALCIFEROL [Suspect]
     Active Substance: ERGOCALCIFEROL
     Indication: Product used for unknown indication
     Dosage: 1000 IU, 1 EVERY 1 DAYS
     Route: 065
  34. ERGOCALCIFEROL [Suspect]
     Active Substance: ERGOCALCIFEROL
     Indication: Product used for unknown indication
     Dosage: 60 MILLIGRAM, 1 EVERY 1 DAYS
     Route: 065
  35. ERGOCALCIFEROL [Suspect]
     Active Substance: ERGOCALCIFEROL
     Dosage: UNK
     Route: 065
  36. ERGOCALCIFEROL [Suspect]
     Active Substance: ERGOCALCIFEROL
     Dosage: 1000 MICROGRAM, 1 EVERY 1 DAYS
     Route: 065
  37. FENTANYL [Suspect]
     Active Substance: FENTANYL
     Indication: Product used for unknown indication
     Dosage: 100 MICROGRAM, 1 EVERY 1 DAYS
     Route: 065
  38. FENTANYL [Suspect]
     Active Substance: FENTANYL
     Dosage: 100 MICROGRAM, 1 EVERY 2 DAYS
     Route: 065
  39. FENTANYL [Suspect]
     Active Substance: FENTANYL
     Dosage: UNK
     Route: 065
  40. FENTANYL [Suspect]
     Active Substance: FENTANYL
     Indication: Product used for unknown indication
     Dosage: 100 MICROGRAM, 1 EVERY 1 DAYS
     Route: 065
  41. HUMIRA [Suspect]
     Active Substance: ADALIMUMAB
     Indication: Crohn^s disease
     Route: 058
  42. HUMIRA [Suspect]
     Active Substance: ADALIMUMAB
     Indication: Crohn^s disease
     Route: 058
  43. HUMIRA [Suspect]
     Active Substance: ADALIMUMAB
     Indication: Crohn^s disease
     Route: 058
  44. INFLIXIMAB [Suspect]
     Active Substance: INFLIXIMAB
     Indication: Crohn^s disease
     Dosage: 500 MILLIGRAM, 1 EVERY 8 WEEKS
     Route: 065
  45. INFLIXIMAB [Suspect]
     Active Substance: INFLIXIMAB
     Dosage: 500 MILLIGRAM
     Route: 065
  46. INFLIXIMAB [Suspect]
     Active Substance: INFLIXIMAB
     Dosage: 500 MILLIGRAM, 1 EVERY 2 WEEKS
     Route: 065
  47. INFLIXIMAB [Suspect]
     Active Substance: INFLIXIMAB
     Indication: Crohn^s disease
     Dosage: 500 MILLIGRAM, 1 EVERY 6 WEEKS
     Route: 065
  48. INFLIXIMAB [Suspect]
     Active Substance: INFLIXIMAB
     Indication: Crohn^s disease
     Route: 065
  49. MESALAMINE [Suspect]
     Active Substance: MESALAMINE
     Indication: Product used for unknown indication
     Route: 065
  50. METHOTREXATE [Suspect]
     Active Substance: METHOTREXATE
     Indication: Product used for unknown indication
     Route: 065
  51. METHOTREXATE [Suspect]
     Active Substance: METHOTREXATE
     Indication: Product used for unknown indication
     Route: 065
  52. MESALAMINE [Suspect]
     Active Substance: MESALAMINE
     Indication: Product used for unknown indication
     Route: 065
  53. MESALAMINE [Suspect]
     Active Substance: MESALAMINE
     Indication: Product used for unknown indication
     Dosage: 100 MILLIGRAM, 1 EVERY 1 DAYS
     Route: 065
  54. MESALAMINE [Suspect]
     Active Substance: MESALAMINE
     Indication: Product used for unknown indication
     Route: 065
  55. PENTASA [Suspect]
     Active Substance: MESALAMINE
     Indication: Product used for unknown indication
     Route: 065
  56. PREDNISONE [Suspect]
     Active Substance: PREDNISONE
     Indication: Product used for unknown indication
     Dosage: 10 MILLIGRAM, 1 EVERY 1 DAYS
     Route: 065
  57. PREDNISONE [Suspect]
     Active Substance: PREDNISONE
     Indication: Product used for unknown indication
     Dosage: 60 MILLIGRAM, 1 EVERY 2 DAYS
     Route: 048
  58. PREDNISONE [Suspect]
     Active Substance: PREDNISONE
     Dosage: 10 MILLIGRAM, 1 EVERY 1 DAYS
     Route: 065
  59. PREDNISONE [Suspect]
     Active Substance: PREDNISONE
     Dosage: 60 MILLIGRAM, 1 EVERY 1 DAYS
     Route: 048
  60. PREDNISONE [Suspect]
     Active Substance: PREDNISONE
     Dosage: 60 MILLIGRAM, 1 EVERY 1 DAYS
     Route: 048
  61. ROSUVASTATIN CALCIUM [Suspect]
     Active Substance: ROSUVASTATIN CALCIUM
     Indication: Product used for unknown indication
     Dosage: 10 MILLIGRAM, 1 EVERY 1 DAY
     Route: 065
  62. ROSUVASTATIN CALCIUM [Suspect]
     Active Substance: ROSUVASTATIN CALCIUM
     Dosage: 10 MILLIGRAM, 1 EVERY 1 DAY
     Route: 065
  63. ROSUVASTATIN CALCIUM [Suspect]
     Active Substance: ROSUVASTATIN CALCIUM
     Dosage: 10 MILLIGRAM, 1 EVERY 1 DAY
     Route: 048
  64. ROSUVASTATIN CALCIUM [Suspect]
     Active Substance: ROSUVASTATIN CALCIUM
     Dosage: 10 MILLIGRAM, 1 EVERY 1 DAY
     Route: 048
  65. ROSUVASTATIN CALCIUM [Suspect]
     Active Substance: ROSUVASTATIN CALCIUM
     Dosage: 10 MILLIGRAM, 1 EVERY 2 DAY
     Route: 048
  66. ROSUVASTATIN CALCIUM [Suspect]
     Active Substance: ROSUVASTATIN CALCIUM
     Dosage: 10 MILLIGRAM, 1 EVERY 2 DAY
     Route: 048
  67. ROSUVASTATIN CALCIUM [Suspect]
     Active Substance: ROSUVASTATIN CALCIUM
     Indication: Product used for unknown indication
     Dosage: 10 MILLIGRAM, 1 EVERY 1 DAYS
     Route: 065
  68. ALBUTEROL [Suspect]
     Active Substance: ALBUTEROL
     Indication: Product used for unknown indication
     Dosage: UNK
     Route: 065
  69. ALBUTEROL [Suspect]
     Active Substance: ALBUTEROL
     Dosage: UNK
     Route: 065
  70. MESALAMINE [Suspect]
     Active Substance: MESALAMINE
     Indication: Product used for unknown indication
     Route: 065
  71. SUMATRIPTAN [Suspect]
     Active Substance: SUMATRIPTAN
     Indication: Product used for unknown indication
     Dosage: 20 MILLIGRAM
     Route: 065
  72. SUMATRIPTAN SUCCINATE [Suspect]
     Active Substance: SUMATRIPTAN SUCCINATE
     Indication: Product used for unknown indication
     Dosage: 20 MILLIGRAM
  73. SUMATRIPTAN SUCCINATE [Suspect]
     Active Substance: SUMATRIPTAN SUCCINATE
     Dosage: 20 MILLIGRAM, 1 EVERY 2 DAYS
     Route: 065
  74. SUMATRIPTAN SUCCINATE [Suspect]
     Active Substance: SUMATRIPTAN SUCCINATE
     Dosage: 20 MILLIGRAM
     Route: 065
  75. SUMATRIPTAN SUCCINATE [Suspect]
     Active Substance: SUMATRIPTAN SUCCINATE
     Dosage: UNK
     Route: 065
  76. TELMISARTAN [Suspect]
     Active Substance: TELMISARTAN
     Indication: Product used for unknown indication
     Dosage: 160 MILLIGRAM, 1 EVERY 1 DAY
     Route: 065
  77. TELMISARTAN [Suspect]
     Active Substance: TELMISARTAN
     Dosage: 160 MILLIGRAM, 1 EVERY 2 DAY
     Route: 048
  78. TELMISARTAN [Suspect]
     Active Substance: TELMISARTAN
     Dosage: 1 EVERY 1 DAY
     Route: 065
  79. TELMISARTAN [Suspect]
     Active Substance: TELMISARTAN
     Indication: Product used for unknown indication
     Dosage: 160 MILLIGRAM, 1 EVERY 1 DAY
     Route: 065
  80. VENLAFAXINE HYDROCHLORIDE [Suspect]
     Active Substance: VENLAFAXINE HYDROCHLORIDE
     Indication: Product used for unknown indication
     Dosage: 1 DOSAGE FORM, 1 EVERY 1 DAYS
     Route: 065
  81. VENLAFAXINE HYDROCHLORIDE [Suspect]
     Active Substance: VENLAFAXINE HYDROCHLORIDE
     Dosage: UNK
     Route: 065
  82. VENLAFAXINE HYDROCHLORIDE [Suspect]
     Active Substance: VENLAFAXINE HYDROCHLORIDE
     Dosage: 1 EVERY 1 DAYS
     Route: 065

REACTIONS (12)
  - Chronic kidney disease [Unknown]
  - Drug intolerance [Unknown]
  - Endometriosis [Unknown]
  - Arthritis [Unknown]
  - Asthma [Unknown]
  - Depression [Unknown]
  - Drug specific antibody present [Unknown]
  - Hypertension [Unknown]
  - Migraine [Unknown]
  - Psoriasis [Unknown]
  - Drug ineffective [Unknown]
  - Incorrect route of product administration [Unknown]
